FAERS Safety Report 21887664 (Version 1)
Quarter: 2023Q1

REPORT INFORMATION
  Report Type: Spontaneous
  Country: US (occurrence: US)
  Receive Date: 20230120
  Receipt Date: 20230120
  Transmission Date: 20230417
  Serious: No
  Sender: FDA-Public Use
  Company Number: US-STRIDES ARCOLAB LIMITED-2022SP014169

PATIENT
  Age: 41 Year
  Sex: Female

DRUGS (5)
  1. ETOPOSIDE [Suspect]
     Active Substance: ETOPOSIDE
     Indication: Metastases to placenta
     Dosage: UNK, CYCLICAL,4 CYCLES OF AGGRESSIVE CHEMO-THERAPY,ALTERNATING WEEKLY  WITH EMA-CO REGIMEN
     Route: 065
  2. METHOTREXATE [Suspect]
     Active Substance: METHOTREXATE
     Indication: Metastases to placenta
     Dosage: UNK, CYCLICAL,4 CYCLES OF AGGRESSIVE CHEMO-THERAPY,ALTERNATING WEEKLY  WITH EMA-CO REGIMEN
     Route: 065
  3. ACTINOMYCIN D [Concomitant]
     Active Substance: DACTINOMYCIN
     Indication: Metastases to placenta
     Dosage: UNK, CYCLICAL,4 CYCLES OF AGGRESSIVE CHEMO-THERAPY,ALTERNATING WEEKLY  WITH EMA-CO REGIMEN
     Route: 065
  4. VINCRISTINE [Concomitant]
     Active Substance: VINCRISTINE
     Indication: Metastases to placenta
     Dosage: UNK, CYCLICAL,4 CYCLES OF AGGRESSIVE CHEMO-THERAPY,ALTERNATING WEEKLY  WITH EMA-CO REGIMEN
     Route: 065
  5. CYCLOPHOSPHAMIDE [Concomitant]
     Active Substance: CYCLOPHOSPHAMIDE
     Indication: Metastases to placenta
     Dosage: UNK, CYCLICAL,4 CYCLES OF AGGRESSIVE CHEMO-THERAPY,ALTERNATING WEEKLY  WITH EMA-CO REGIMEN
     Route: 065

REACTIONS (1)
  - Off label use [Unknown]
